FAERS Safety Report 6689949-7 (Version None)
Quarter: 2010Q2

REPORT INFORMATION
  Report Type: 
  Country: None (occurrence: None)
  Receive Date: 20100421
  Receipt Date: 20100409
  Transmission Date: 20101027
  Serious: Yes (Other)
  Sender: FDA-Public Use
  Company Number: DE-PFIZER INC-2010033680

PATIENT
  Age: 39 Year
  Sex: Female
  Weight: 70 kg

DRUGS (3)
  1. ZELDOX [Suspect]
     Indication: MAJOR DEPRESSION
     Dosage: 20 MG, 2X/DAY
     Route: 048
     Dates: start: 20100127
  2. ZELDOX [Suspect]
     Indication: DYSAESTHESIA
  3. COLCHICINE [Concomitant]

REACTIONS (5)
  - DRY MOUTH [None]
  - DYSPHAGIA [None]
  - DYSPHONIA [None]
  - OROPHARYNGEAL PAIN [None]
  - PHARYNGEAL OEDEMA [None]
